FAERS Safety Report 8116885-1 (Version None)
Quarter: 2012Q1

REPORT INFORMATION
  Report Type: 
  Country: None (occurrence: None)
  Receive Date: 20120206
  Receipt Date: 20120202
  Transmission Date: 20120608
  Serious: Yes (Life-Threatening)
  Sender: FDA-Public Use
  Company Number: PHHY2012GB008793

PATIENT

DRUGS (4)
  1. BECLOMETHASONE DIPROPIONATE [Concomitant]
  2. ALBUTEROL SULFATE AUTOHALER [Concomitant]
     Indication: ASTHMA
  3. FENTANYL CITRATE [Concomitant]
     Indication: GENERAL ANAESTHESIA
     Dosage: 100 UG, UNK
     Route: 042
     Dates: start: 20111118, end: 20111118
  4. ONDANSETRON [Suspect]
     Indication: GENERAL ANAESTHESIA
     Dosage: 4 MG, UNK
     Route: 042
     Dates: start: 20111118, end: 20111118

REACTIONS (4)
  - HYPOTENSION [None]
  - TRYPTASE INCREASED [None]
  - LOSS OF CONSCIOUSNESS [None]
  - THROAT IRRITATION [None]
